FAERS Safety Report 6659234-8 (Version None)
Quarter: 2010Q1

REPORT INFORMATION
  Report Type: 
  Country: None (occurrence: None)
  Receive Date: 20100330
  Receipt Date: 20100318
  Transmission Date: 20100710
  Serious: No
  Sender: FDA-Public Use
  Company Number: US-BIOGENIDEC-2010BI009392

PATIENT
  Sex: Female

DRUGS (3)
  1. TYSABRI [Suspect]
     Indication: MULTIPLE SCLEROSIS
     Route: 042
     Dates: start: 20070101
  2. KLONOPIN [Concomitant]
     Indication: MUSCLE SPASMS
  3. ROBAXIN [Concomitant]
     Indication: MUSCLE SPASMS

REACTIONS (13)
  - BALANCE DISORDER [None]
  - BRONCHITIS [None]
  - COGNITIVE DISORDER [None]
  - DYSPHONIA [None]
  - EXOSTOSIS [None]
  - EYE PAIN [None]
  - HEADACHE [None]
  - HYPERSOMNIA [None]
  - JOINT LOCK [None]
  - MYALGIA [None]
  - NEURALGIA [None]
  - TREMOR [None]
  - TRIGEMINAL NEURALGIA [None]
